FAERS Safety Report 8134955 (Version 3)
Quarter: 2014Q2

REPORT INFORMATION
  Report Type: Spontaneous
  Country: JP (occurrence: None)
  Receive Date: 20110902
  Receipt Date: 20140617
  Transmission Date: 20141212
  Serious: Yes (Hospitalization)
  Sender: FDA-Public Use
  Company Number: JP-20110029

PATIENT
  Age: 65 Year
  Sex: Male

DRUGS (7)
  1. ETHIODIZED OIL [Suspect]
     Indication: LUNG DISORDER
     Dosage: 0.6 ML (0.3 ML, 2 IN 1 D), INTRATUMOR
     Dates: start: 20110802, end: 20110802
  2. AMOBAN (ZOPICLONE) (ZOPICLONE) [Concomitant]
  3. PURSENND (SENNOSIDE) [Concomitant]
  4. LOXOPROFEN (LOXOPROFEN SODIUM HYDRATE) [Concomitant]
  5. MUCOSTA (REBAMIPIDE) [Concomitant]
  6. FLMOX (CEFCAPENE HYDROCHLORIDE HYDRATE) [Concomitant]
  7. CEFAMZIN (CEFAMZIN SODIUM) [Concomitant]

REACTIONS (4)
  - Off label use [None]
  - Alveolitis allergic [None]
  - Drug administration error [None]
  - Pneumonia [None]
